FAERS Safety Report 6771901-4 (Version None)
Quarter: 2010Q2

REPORT INFORMATION
  Report Type: 
  Country: None (occurrence: None)
  Receive Date: 20100616
  Receipt Date: 20090511
  Transmission Date: 20101027
  Serious: No
  Sender: FDA-Public Use
  Company Number: US-ASTRAZENECA-2009UW12045

PATIENT
  Age: 63 Year
  Sex: Male
  Weight: 68.9 kg

DRUGS (8)
  1. ENTOCORT EC [Suspect]
     Indication: CROHN'S DISEASE
     Route: 048
  2. ACTONEL [Concomitant]
     Indication: OSTEOPOROSIS
  3. PENTASA [Concomitant]
  4. IMURAN [Concomitant]
  5. VALIUM [Concomitant]
  6. VITAMINS [Concomitant]
  7. IRON [Concomitant]
  8. PROTONIX [Concomitant]
     Indication: GASTROOESOPHAGEAL REFLUX DISEASE

REACTIONS (3)
  - CONSTIPATION [None]
  - EAR INFECTION [None]
  - OROPHARYNGEAL PAIN [None]
